FAERS Safety Report 6375905-5 (Version None)
Quarter: 2009Q3

REPORT INFORMATION
  Report Type: 
  Country: None (occurrence: None)
  Receive Date: 20090924
  Receipt Date: 20090916
  Transmission Date: 20100115
  Serious: Yes (Hospitalization, Other)
  Sender: FDA-Public Use
  Company Number: US-AMGEN-QUU364960

PATIENT
  Sex: Female

DRUGS (3)
  1. ENBREL [Suspect]
     Indication: RHEUMATOID ARTHRITIS
     Route: 058
     Dates: start: 20040902
  2. METHOTREXATE [Concomitant]
     Route: 058
  3. UNSPECIFIED STEROIDS [Concomitant]

REACTIONS (5)
  - COMPRESSION FRACTURE [None]
  - FOOT FRACTURE [None]
  - LATENT TUBERCULOSIS [None]
  - RHEUMATOID ARTHRITIS [None]
  - SPINAL COMPRESSION FRACTURE [None]
